FAERS Safety Report 13117044 (Version 10)
Quarter: 2018Q1

REPORT INFORMATION
  Report Type: Spontaneous
  Country: US (occurrence: US)
  Receive Date: 20170116
  Receipt Date: 20180228
  Transmission Date: 20180508
  Serious: Yes (Hospitalization, Congenital Anomaly, Other)
  Sender: FDA-Public Use
  Company Number: PHEH2017US001589

PATIENT
  Sex: Female

DRUGS (6)
  1. ONDANSETRON [Suspect]
     Active Substance: ONDANSETRON
     Indication: FOETAL EXPOSURE DURING PREGNANCY
     Route: 064
  2. ONDANSETRON [Suspect]
     Active Substance: ONDANSETRON
     Indication: FOETAL EXPOSURE DURING PREGNANCY
     Dosage: MOTHER DOSE: 02 DF, Q8H
     Route: 064
  3. ONDANSETRON. [Suspect]
     Active Substance: ONDANSETRON
     Indication: FOETAL EXPOSURE DURING PREGNANCY
     Dosage: MOTHER^S DOSE: 04 MG, TWICE DAILY (BID)
     Route: 064
  4. ZOFRAN [Suspect]
     Active Substance: ONDANSETRON HYDROCHLORIDE
     Indication: FOETAL EXPOSURE DURING PREGNANCY
     Dosage: MOTHER DOSE: 02 DF, Q8H
     Route: 064
  5. ONDANSETRON [Suspect]
     Active Substance: ONDANSETRON
     Indication: FOETAL EXPOSURE DURING PREGNANCY
     Dosage: MOTHER DOSE: 04 MG, QD
     Route: 064
  6. ZOFRAN [Suspect]
     Active Substance: ONDANSETRON HYDROCHLORIDE
     Indication: FOETAL EXPOSURE DURING PREGNANCY
     Dosage: MOTHER DOSE: 04 MG PER 02 ML, Q6H
     Route: 064

REACTIONS (27)
  - Heart disease congenital [Unknown]
  - Ventricular septal defect [Unknown]
  - Ventricular hypoplasia [Unknown]
  - Tricuspid valve incompetence [Unknown]
  - Mitral valve incompetence [Unknown]
  - Emotional distress [Unknown]
  - Injury [Unknown]
  - Hypoplastic right heart syndrome [Unknown]
  - Pulmonary oedema neonatal [Unknown]
  - Anxiety [Unknown]
  - Patent ductus arteriosus [Unknown]
  - Wolff-Parkinson-White syndrome congenital [Unknown]
  - Sepsis [Unknown]
  - Pleural effusion [Unknown]
  - Atelectasis [Unknown]
  - Coarctation of the aorta [Unknown]
  - Pain [Unknown]
  - Double outlet right ventricle [Unknown]
  - Congenital tricuspid valve atresia [Unknown]
  - Congenital tricuspid valve stenosis [Unknown]
  - Transposition of the great vessels [Unknown]
  - Left-to-right cardiac shunt [Unknown]
  - Pyelocaliectasis [Unknown]
  - Tricuspid valve disease [Unknown]
  - Tachycardia [Unknown]
  - Foetal exposure during pregnancy [Unknown]
  - Cardiomegaly [Unknown]
